FAERS Safety Report 5115845-2 (Version None)
Quarter: 2006Q3

REPORT INFORMATION
  Report Type: 
  Country: None (occurrence: None)
  Receive Date: 20060925
  Receipt Date: 20060915
  Transmission Date: 20061208
  Serious: Yes (Death)
  Sender: FDA-Public Use
  Company Number: 2005126004

PATIENT
  Age: 61 Year
  Sex: Male

DRUGS (9)
  1. NEURONTIN [Suspect]
     Indication: PAIN
     Dosage: 100 MG (1 IN 1 D), ORAL
     Route: 048
     Dates: start: 20010710
  2. NEURONTIN [Suspect]
     Indication: PARAESTHESIA
     Dosage: 100 MG (1 IN 1 D), ORAL
     Route: 048
     Dates: start: 20010710
  3. NEURONTIN [Suspect]
     Indication: RESTLESS LEGS SYNDROME
     Dosage: 100 MG (1 IN 1 D), ORAL
     Route: 048
     Dates: start: 20010710
  4. TRAZODONE HCL [Concomitant]
  5. SERZONE [Concomitant]
  6. VIAGRA [Concomitant]
  7. PAXIL [Concomitant]
  8. CLONAZEPAM [Concomitant]
  9. LEXAPRO [Concomitant]

REACTIONS (2)
  - COMPLETED SUICIDE [None]
  - DRUG INEFFECTIVE [None]
